FAERS Safety Report 10367189 (Version 1)
Quarter: 2014Q3

REPORT INFORMATION
  Report Type: Spontaneous
  Country: US (occurrence: None)
  Receive Date: 20140805
  Receipt Date: 20140805
  Transmission Date: 20150326
  Serious: Yes (Disabling, Other)
  Sender: FDA-Public Use
  Company Number: None

PATIENT
  Age: 60 Year
  Sex: Female

DRUGS (17)
  1. CILANTROL [Concomitant]
  2. N-ZYMES [Concomitant]
  3. LYMPH STEM LIQUESINCE [Concomitant]
  4. SUPER DHA LIQUID [Concomitant]
  5. RADIALGIN [Concomitant]
  6. LYME NO SODE [Concomitant]
  7. NAC [Concomitant]
  8. VITAMIN D3 [Concomitant]
     Active Substance: CHOLECALCIFEROL
  9. KEPPRA [Suspect]
     Active Substance: LEVETIRACETAM
     Indication: CONVULSION
     Dosage: 2-500ML TWICE DAILY ?2 PILLS?TWICE DAILY?BY MOUTH WITH WATER
     Route: 048
     Dates: start: 20110915, end: 20140315
  10. TUMERIC [Concomitant]
  11. MAGNEIUM [Concomitant]
  12. ST. MARY^S THISTLE [Concomitant]
  13. PARASITE COMPLEX [Concomitant]
  14. ZINC [Concomitant]
     Active Substance: ZINC\ZINC CHLORIDE
  15. MARINE D-3 [Concomitant]
  16. SELENIUM [Concomitant]
     Active Substance: SELENIUM
  17. CORRANDER [Concomitant]

REACTIONS (8)
  - Psychomotor hyperactivity [None]
  - Convulsion [None]
  - Fall [None]
  - Head injury [None]
  - Product substitution issue [None]
  - Tremor [None]
  - Therapeutic response changed [None]
  - Paralysis [None]

NARRATIVE: CASE EVENT DATE: 20140215
